FAERS Safety Report 19310546 (Version 2)
Quarter: 2021Q3

REPORT INFORMATION
  Report Type: Report from Study
  Country: US (occurrence: US)
  Receive Date: 20210526
  Receipt Date: 20210702
  Transmission Date: 20211014
  Serious: Yes (Hospitalization)
  Sender: FDA-Public Use
  Company Number: US-BAUSCH-BL-2021-017215

PATIENT
  Age: 65 Year
  Sex: Male
  Weight: 102.15 kg

DRUGS (2)
  1. RELISTOR [Suspect]
     Active Substance: METHYLNALTREXONE BROMIDE
     Indication: CONSTIPATION
     Route: 048
     Dates: start: 202001, end: 202101
  2. RELISTOR [Suspect]
     Active Substance: METHYLNALTREXONE BROMIDE
     Route: 048
     Dates: start: 202101

REACTIONS (3)
  - Bronchial haemorrhage [Recovered/Resolved]
  - Therapy interrupted [Unknown]
  - Coma [Recovered/Resolved]

NARRATIVE: CASE EVENT DATE: 202012
